FAERS Safety Report 24095298 (Version 1)
Quarter: 2024Q3

REPORT INFORMATION
  Report Type: Spontaneous
  Country: US (occurrence: US)
  Receive Date: 20240716
  Receipt Date: 20240716
  Transmission Date: 20241017
  Serious: Yes (Hospitalization)
  Sender: MYLAN
  Company Number: US-MYLANLABS-2024M1064083

PATIENT
  Age: 58 Year
  Sex: Male

DRUGS (5)
  1. HEPARIN [Suspect]
     Active Substance: HEPARIN SODIUM
     Indication: Thrombosis prophylaxis
     Dosage: INITIAL DOSE: 8UNITS/KG/H
     Route: 042
  2. HEPARIN [Suspect]
     Active Substance: HEPARIN SODIUM
     Dosage: DOSE WAS INCREASED TO 10 UNITS/KG/H; TOTAL DURATION OF INITIAL THERAPY WAS  32 DAYS
     Route: 042
  3. HEPARIN [Suspect]
     Active Substance: HEPARIN SODIUM
     Dosage: POST RESUMING PRIOR TO TRANSPLANT; OTAL HEPARIN THERAPY DURATION WAS 77 DAYS
     Route: 042
  4. HEPARIN [Suspect]
     Active Substance: HEPARIN SODIUM
     Dosage: 22000 UNITS; AT TIME OF LUNG TRANSPLANT
     Route: 042
  5. BIVALIRUDIN [Concomitant]
     Active Substance: BIVALIRUDIN
     Indication: Thrombosis prophylaxis
     Dosage: DOSE 0.05 UNITS/KG/H
     Route: 065

REACTIONS (3)
  - Catheter site haemorrhage [Unknown]
  - Post procedural haemorrhage [Unknown]
  - Drug ineffective [Unknown]
